FAERS Safety Report 11760237 (Version 2)
Quarter: 2016Q1

REPORT INFORMATION
  Report Type: Report from Study
  Country: US (occurrence: US)
  Receive Date: 20151120
  Receipt Date: 20160223
  Transmission Date: 20160525
  Serious: Yes (Hospitalization)
  Sender: FDA-Public Use
  Company Number: US-JAZZ-2015-US-019334

PATIENT
  Age: 63 Year
  Sex: Male

DRUGS (7)
  1. LIPITOR [Concomitant]
     Active Substance: ATORVASTATIN CALCIUM
     Indication: HYPERLIPIDAEMIA
  2. ZANAFLEX [Concomitant]
     Active Substance: TIZANIDINE HYDROCHLORIDE
     Indication: PAIN
  3. PRIALT [Suspect]
     Active Substance: ZICONOTIDE ACETATE
     Indication: PAIN
     Dosage: 0.093 ?G, QH
     Route: 037
     Dates: start: 20140129, end: 20150819
  4. DEXTROAMPHETAMINE. [Concomitant]
     Active Substance: DEXTROAMPHETAMINE
  5. COREG [Concomitant]
     Active Substance: CARVEDILOL
  6. LOSARTAN. [Concomitant]
     Active Substance: LOSARTAN
  7. REMERON [Concomitant]
     Active Substance: MIRTAZAPINE
     Indication: ANXIETY

REACTIONS (3)
  - Urinary tract obstruction [Recovered/Resolved]
  - Pyelonephritis [Recovered/Resolved]
  - Sepsis [Recovered/Resolved]

NARRATIVE: CASE EVENT DATE: 20150404
